FAERS Safety Report 24051875 (Version 1)
Quarter: 2024Q3

REPORT INFORMATION
  Report Type: Spontaneous
  Country: US (occurrence: US)
  Receive Date: 20240704
  Receipt Date: 20240704
  Transmission Date: 20241017
  Serious: No
  Sender: ABBVIE
  Company Number: US-ABBVIE-5825534

PATIENT
  Sex: Female
  Weight: 41 kg

DRUGS (3)
  1. LEXAPRO [Suspect]
     Active Substance: ESCITALOPRAM OXALATE
     Indication: Depression
     Dosage: FORM STRENGTH: 5 MILLIGRAM
     Route: 048
     Dates: start: 202402, end: 202406
  2. LEXAPRO [Suspect]
     Active Substance: ESCITALOPRAM OXALATE
     Indication: Depression
     Dosage: HALF TABLET OF 5 MILLIGRAM
     Route: 048
     Dates: start: 202402, end: 202402
  3. ATORVASTATIN [Concomitant]
     Active Substance: ATORVASTATIN
     Indication: Blood cholesterol
     Dosage: FREQUENCY TEXT: 2 PILLS PER WEEK

REACTIONS (8)
  - Wrong technique in product usage process [Not Recovered/Not Resolved]
  - Depression [Recovered/Resolved]
  - Muscle tightness [Recovered/Resolved]
  - Confusional state [Not Recovered/Not Resolved]
  - Gait disturbance [Recovered/Resolved]
  - Pain [Recovered/Resolved]
  - Chills [Not Recovered/Not Resolved]
  - Fatigue [Not Recovered/Not Resolved]

NARRATIVE: CASE EVENT DATE: 20240101
